FAERS Safety Report 8524723-8 (Version None)
Quarter: 2012Q3

REPORT INFORMATION
  Report Type: 
  Country: None (occurrence: None)
  Receive Date: 20120720
  Receipt Date: 20120713
  Transmission Date: 20120928
  Serious: Yes (Other)
  Sender: FDA-Public Use
  Company Number: US-ELI_LILLY_AND_COMPANY-US201207004654

PATIENT
  Age: 41 Year
  Sex: Female
  Weight: 117.91 kg

DRUGS (10)
  1. ISOSORBIDE [Concomitant]
     Dosage: 30 MG, TID
  2. LIPITOR [Concomitant]
     Dosage: 80 MG, QD
  3. PAROXETINE [Concomitant]
     Dosage: UNK, QD
  4. ASPIRIN [Concomitant]
     Dosage: 325 MG, QD
  5. EFFIENT [Suspect]
     Indication: STENT PLACEMENT
     Dosage: 10 MG, QD
  6. NOVOLIN N [Concomitant]
     Dosage: 90 IU, BID
  7. LISINOPRIL [Concomitant]
     Dosage: 10 MG, QD
  8. NOVOLIN R [Concomitant]
  9. CARVEDILOL [Concomitant]
     Dosage: 12.5 MG, BID
  10. EFFIENT [Suspect]
     Dosage: 10 MG, EVERY OTHER DAY

REACTIONS (6)
  - CARDIOVASCULAR DISORDER [None]
  - CHEST DISCOMFORT [None]
  - MYOCARDIAL INFARCTION [None]
  - SLUGGISHNESS [None]
  - DRUG DOSE OMISSION [None]
  - FATIGUE [None]
